FAERS Safety Report 6886827-5 (Version None)
Quarter: 2010Q3

REPORT INFORMATION
  Report Type: 
  Country: None (occurrence: None)
  Receive Date: 20100730
  Receipt Date: 20100719
  Transmission Date: 20110219
  Serious: Yes (Other)
  Sender: FDA-Public Use
  Company Number: IE-PFIZER INC-2010058264

PATIENT
  Age: 25 Year
  Sex: Male
  Weight: 70 kg

DRUGS (1)
  1. CHAMPIX [Suspect]
     Indication: SMOKING CESSATION THERAPY
     Dosage: 1 MG, UNK
     Route: 048
     Dates: start: 20080401, end: 20080616

REACTIONS (8)
  - COGNITIVE DISORDER [None]
  - DEPRESSION [None]
  - DISORIENTATION [None]
  - EUPHORIC MOOD [None]
  - FEELING ABNORMAL [None]
  - PHYSICAL ASSAULT [None]
  - PSYCHOTIC DISORDER [None]
  - SLEEP DISORDER [None]
